FAERS Safety Report 11061522 (Version 13)
Quarter: 2016Q1

REPORT INFORMATION
  Report Type: Spontaneous
  Country: US (occurrence: US)
  Receive Date: 20150424
  Receipt Date: 20160310
  Transmission Date: 20160525
  Serious: Yes (Hospitalization, Other)
  Sender: FDA-Public Use
  Company Number: US-PFIZER INC-2015139063

PATIENT
  Age: 63 Year
  Sex: Female

DRUGS (8)
  1. RENVELA [Concomitant]
     Active Substance: SEVELAMER CARBONATE
  2. SUTENT [Suspect]
     Active Substance: SUNITINIB MALATE
     Dosage: 25 MG, DAILY, CYCLIC (2 WEEKS ON AND 1 WEEK OFF)
     Route: 048
     Dates: start: 20150522, end: 20150809
  3. SUTENT [Suspect]
     Active Substance: SUNITINIB MALATE
     Dosage: 25 MG, CYCLIC (DAILY 28 DAYS ON AND 14 DAYS OFF)
     Route: 048
     Dates: start: 20150314
  4. PROTONIX [Concomitant]
     Active Substance: PANTOPRAZOLE SODIUM
     Dosage: UNK
  5. SUTENT [Suspect]
     Active Substance: SUNITINIB MALATE
     Indication: RENAL CANCER STAGE IV
     Dosage: 25 MG, 1 CAPSULE. DAILY
     Route: 048
     Dates: start: 20150129
  6. SUTENT [Suspect]
     Active Substance: SUNITINIB MALATE
     Dosage: 25 MG, (2 WEEKS ON/ 1WEEK OFF)
     Dates: start: 20160120
  7. SENSIPAR [Concomitant]
     Active Substance: CINACALCET HYDROCHLORIDE
  8. SUTENT [Suspect]
     Active Substance: SUNITINIB MALATE
     Dosage: 25 MG, CYCLIC (2 WEEKS ON AND 1 WEEK OFF)
     Route: 048
     Dates: start: 20151116, end: 20151207

REACTIONS (17)
  - Sepsis [Unknown]
  - Nausea [Recovered/Resolved]
  - Glossodynia [Recovering/Resolving]
  - Joint swelling [Unknown]
  - Disease progression [Unknown]
  - Influenza [Recovered/Resolved]
  - Burning sensation [Recovered/Resolved]
  - Oral pain [Recovering/Resolving]
  - Palmar-plantar erythrodysaesthesia syndrome [Recovering/Resolving]
  - Arteriovenous fistula site infection [Recovering/Resolving]
  - Renal cancer stage IV [Unknown]
  - Pruritus [Recovered/Resolved]
  - Graft thrombosis [Unknown]
  - Rash [Recovered/Resolved]
  - Fatigue [Unknown]
  - Arteriovenous fistula thrombosis [Recovering/Resolving]
  - Musculoskeletal stiffness [Unknown]

NARRATIVE: CASE EVENT DATE: 20150402
